FAERS Safety Report 5143868-6 (Version None)
Quarter: 2006Q4

REPORT INFORMATION
  Report Type: 
  Country: None (occurrence: None)
  Receive Date: 20061030
  Receipt Date: 20061017
  Transmission Date: 20070319
  Serious: Yes (Other)
  Sender: FDA-Public Use
  Company Number: 2006127352

PATIENT
  Age: 47 Year
  Sex: Female
  Weight: 113.3993 kg

DRUGS (11)
  1. ZYVOX [Suspect]
     Indication: STAPHYLOCOCCAL INFECTION
     Dosage: 1200 MG (600 MG, 2 IN 1 D)
     Dates: start: 20060926, end: 20061010
  2. COUMADIN [Concomitant]
  3. RYTHMOL [Concomitant]
  4. SYNTHROID [Concomitant]
  5. HYDROCHLOROTHIAZIDE [Concomitant]
  6. ALL OTHER THERAPEUTIC PRODUCTS (ALL OTHER THERAPEUTIC PRODUCTS) [Concomitant]
  7. NEURONTIN [Concomitant]
  8. MIRAPEX [Concomitant]
  9. PROTONIX [Concomitant]
  10. NYSTAN (NYSTATIN) [Concomitant]
  11. NARDIL [Concomitant]

REACTIONS (2)
  - DIZZINESS [None]
  - HYPOTENSION [None]
